FAERS Safety Report 10330688 (Version 1)
Quarter: 2014Q3

REPORT INFORMATION
  Report Type: Spontaneous
  Country: DE (occurrence: DE)
  Receive Date: 20140722
  Receipt Date: 20140722
  Transmission Date: 20150326
  Serious: Yes (Other)
  Sender: FDA-Public Use
  Company Number: PHHY2014DE087272

PATIENT
  Sex: Female

DRUGS (2)
  1. CO-DIOVAN [Suspect]
     Active Substance: HYDROCHLOROTHIAZIDE\VALSARTAN
     Dosage: 1 DF,(80 MG VALS, 12.5 MG HCTZ) IN THE MORNING
  2. DIOVAN [Suspect]
     Active Substance: VALSARTAN
     Dosage: 80 MG, IN THE EVENING

REACTIONS (3)
  - Accident [Unknown]
  - Spinal fracture [Unknown]
  - Sleep disorder [Unknown]
